FAERS Safety Report 11079067 (Version 2)
Quarter: 2015Q2

REPORT INFORMATION
  Report Type: Spontaneous
  Country: US (occurrence: US)
  Receive Date: 20150430
  Receipt Date: 20150529
  Transmission Date: 20150821
  Serious: Yes (Other)
  Sender: FDA-Public Use
  Company Number: US-ASTRAZENECA-2015SE40115

PATIENT
  Age: 65 Year
  Sex: Female
  Weight: 55.8 kg

DRUGS (5)
  1. METHOTREXATE [Concomitant]
     Active Substance: METHOTREXATE
     Indication: ARTHRITIS
     Route: 048
  2. FOLIC ACID. [Concomitant]
     Active Substance: FOLIC ACID
     Indication: BLOOD FOLATE DECREASED
     Route: 048
  3. RELAFIN [Concomitant]
     Indication: ARTHRITIS
     Route: 048
  4. PLAVIX [Concomitant]
     Active Substance: CLOPIDOGREL BISULFATE
     Indication: TRANSIENT ISCHAEMIC ATTACK
     Route: 048
  5. SYMBICORT [Suspect]
     Active Substance: BUDESONIDE\FORMOTEROL FUMARATE DIHYDRATE
     Indication: ASTHMA
     Dosage: 80/4.5 2 PUFFS  BID
     Route: 055

REACTIONS (8)
  - Fall [Recovering/Resolving]
  - Drug dose omission [Unknown]
  - Ankle fracture [Unknown]
  - Ligament sprain [Recovering/Resolving]
  - Osteoporosis [Unknown]
  - Candida infection [Recovered/Resolved]
  - Intentional product misuse [Unknown]
  - Gait disturbance [Unknown]

NARRATIVE: CASE EVENT DATE: 2012
